FAERS Safety Report 22206259 (Version 2)
Quarter: 2023Q2

REPORT INFORMATION
  Report Type: Spontaneous
  Country: BR (occurrence: BR)
  Receive Date: 20230413
  Receipt Date: 20230417
  Transmission Date: 20230722
  Serious: Yes (Hospitalization, Other)
  Sender: FDA-Public Use
  Company Number: BR-002147023-NVSC2023BR081547

PATIENT
  Age: 9 Year
  Sex: Male

DRUGS (1)
  1. ILARIS [Suspect]
     Active Substance: CANAKINUMAB
     Indication: Autoinflammatory disease
     Dosage: 2 MG/KG, EVERY 6 WEEKS
     Route: 065
     Dates: start: 202104

REACTIONS (4)
  - Oesophageal candidiasis [Recovering/Resolving]
  - Odynophagia [Unknown]
  - Oropharyngeal plaque [Unknown]
  - Product use in unapproved indication [Unknown]

NARRATIVE: CASE EVENT DATE: 20230201
